FAERS Safety Report 7018850-4 (Version None)
Quarter: 2010Q3

REPORT INFORMATION
  Report Type: 
  Country: None (occurrence: None)
  Receive Date: 20100928
  Receipt Date: 20100921
  Transmission Date: 20110219
  Serious: Yes (Other)
  Sender: FDA-Public Use
  Company Number: ES-B.I. PHARMACEUTICALS,INC./RIDGEFIELD-2010-BP-10892YA

PATIENT
  Age: 79 Year
  Sex: Male

DRUGS (1)
  1. OMNIC OCAS ORODISPERSABLE [Suspect]
     Indication: BENIGN PROSTATIC HYPERPLASIA
     Route: 048
     Dates: start: 20090108, end: 20100204

REACTIONS (2)
  - HEAD INJURY [None]
  - SYNCOPE [None]
